FAERS Safety Report 4283461-0 (Version None)
Quarter: 2004Q1

REPORT INFORMATION
  Report Type: 
  Country: None (occurrence: None)
  Receive Date: 20040120
  Receipt Date: 20031007
  Transmission Date: 20041129
  Serious: Yes (Other)
  Sender: FDA-Public Use
  Company Number: US-JNJFOC-20030802776

PATIENT
  Age: 26 Year
  Sex: Female
  Weight: 74.3899 kg

DRUGS (2)
  1. PARAGARD T 380A (INTRAUTERINE CONTRACEPTIVE DEVICE) INTRAUTERINE DEVIC [Suspect]
     Indication: CONTRACEPTION
     Dosage: 1 DOSE(S), INTRAUTERINE
     Route: 015
     Dates: start: 20020401
  2. PRENATAL VITAMINS (PRENATAL VITAMINS) [Concomitant]

REACTIONS (2)
  - PREGNANCY WITH CONTRACEPTIVE DEVICE [None]
  - UTERINE PERFORATION [None]
